FAERS Safety Report 5136460-0 (Version None)
Quarter: 2006Q4

REPORT INFORMATION
  Report Type: 
  Country: None (occurrence: None)
  Receive Date: 20061027
  Receipt Date: 20060810
  Transmission Date: 20070319
  Serious: No
  Sender: FDA-Public Use
  Company Number: US-BRISTOL-MYERS SQUIBB COMPANY-13470893

PATIENT

DRUGS (4)
  1. KENALOG-40 [Suspect]
     Indication: ARTHRITIS
     Dosage: SECOND VIAL LOT # 5M01513 EXPIRATION DATE 31-DEC-2007
     Route: 014
  2. LIDOCAINE [Concomitant]
     Indication: ANAESTHETIC PREMEDICATION
  3. CARBOCAINE [Concomitant]
     Indication: ANAESTHETIC PREMEDICATION
  4. BUPIVACAINE [Concomitant]
     Indication: ANAESTHETIC PREMEDICATION

REACTIONS (1)
  - INJECTION SITE IRRITATION [None]
